FAERS Safety Report 4823238-8 (Version None)
Quarter: 2005Q4

REPORT INFORMATION
  Report Type: 
  Country: None (occurrence: None)
  Receive Date: 20051108
  Receipt Date: 20051108
  Transmission Date: 20060501
  Serious: Yes (Congenital Anomaly, Other)
  Sender: FDA-Public Use
  Company Number: None

PATIENT
  Sex: Male
  Weight: 2.327 kg

DRUGS (2)
  1. BENDECTIN [Suspect]
     Indication: NAUSEA
     Dosage: 1 TABLET DAILY PO
     Route: 048
     Dates: start: 19810801, end: 19820101
  2. BENDECTIN [Suspect]
     Indication: VOMITING IN PREGNANCY
     Dosage: 1 TABLET DAILY PO
     Route: 048
     Dates: start: 19810801, end: 19820101

REACTIONS (10)
  - BLINDNESS UNILATERAL [None]
  - CONGENITAL ANOMALY [None]
  - CONGENITAL VITREOUS ANOMALY [None]
  - DRUG EXPOSURE DURING PREGNANCY [None]
  - NERVOUS SYSTEM DISORDER [None]
  - RETINAL TEAR [None]
  - SCAR [None]
  - SPINAL DEFORMITY [None]
  - VISUAL DISTURBANCE [None]
  - VITRITIS [None]
